APPROVED DRUG PRODUCT: CELEXA
Active Ingredient: CITALOPRAM HYDROBROMIDE
Strength: EQ 40MG BASE
Dosage Form/Route: TABLET;ORAL
Application: N020822 | Product #003 | TE Code: AB
Applicant: ABBVIE INC
Approved: Jul 17, 1998 | RLD: Yes | RS: Yes | Type: RX